FAERS Safety Report 15101406 (Version 1)
Quarter: 2018Q2

REPORT INFORMATION
  Report Type: Spontaneous
  Country: US (occurrence: US)
  Receive Date: 20180611
  Receipt Date: 20180611
  Transmission Date: 20180711
  Serious: No
  Sender: FDA-Public Use
  Company Number: None

PATIENT
  Age: 49 Year
  Sex: Female

DRUGS (2)
  1. GAMUNEX-C [Suspect]
     Active Substance: HUMAN IMMUNOGLOBULIN G
     Indication: CHRONIC INFLAMMATORY DEMYELINATING POLYRADICULONEUROPATHY
     Dosage: ?          OTHER STRENGTH:1/10 GM/ML;OTHER ROUTE:PIV?
     Dates: start: 20161023, end: 20171025
  2. GAMUNEX [Suspect]
     Active Substance: HUMAN IMMUNOGLOBULIN G
     Indication: CHRONIC INFLAMMATORY DEMYELINATING POLYRADICULONEUROPATHY
     Dosage: ?          OTHER STRENGTH:20/200 GM/ML;OTHER ROUTE:PIV?
     Dates: start: 20161023, end: 20171025

REACTIONS (3)
  - Drug prescribing error [None]
  - Ischaemia [None]
  - Legal problem [None]

NARRATIVE: CASE EVENT DATE: 20180608
